FAERS Safety Report 23302743 (Version 1)
Quarter: 2023Q4

REPORT INFORMATION
  Report Type: Spontaneous
  Country: ES (occurrence: ES)
  Receive Date: 20231215
  Receipt Date: 20231215
  Transmission Date: 20240110
  Serious: Yes (Hospitalization, Other)
  Sender: FDA-Public Use
  Company Number: ES-Accord-392545

PATIENT
  Age: 56 Year
  Sex: Male
  Weight: 116 kg

DRUGS (10)
  1. PACLITAXEL [Suspect]
     Active Substance: PACLITAXEL
     Indication: Ductal adenocarcinoma of pancreas
     Dosage: DOSE GIVEN ON DAY 1, 8 AND 15, ONCE
     Dates: start: 20231106, end: 20231106
  2. GEMCITABINE [Suspect]
     Active Substance: GEMCITABINE
     Indication: Ductal adenocarcinoma of pancreas
     Dosage: DOSE GIVEN ON DAY 1, 8 AND 15, ONCE
     Dates: start: 20231106, end: 20231106
  3. REMDESIVIR [Concomitant]
     Active Substance: REMDESIVIR
     Indication: COVID-19
     Dosage: 200 MG (200 MG,1 IN 1 D)
     Dates: start: 20231110, end: 20231110
  4. DEXAMETHASONE [Concomitant]
     Active Substance: DEXAMETHASONE
     Indication: Transaminases decreased
     Dosage: 4 MG, ONCE?ROA-ORAL
     Dates: start: 20231010
  5. DEXAMETHASONE [Concomitant]
     Active Substance: DEXAMETHASONE
     Indication: Transaminases
     Dosage: 2 MG, 1 IN 1 D?ROA-ORAL
     Dates: start: 20231110
  6. LORAZEPAM [Concomitant]
     Active Substance: LORAZEPAM
     Indication: Anxiety
     Dosage: 1 MG, 1 IN 1 D
     Dates: start: 20231110
  7. AMLODIPINE [Concomitant]
     Active Substance: AMLODIPINE BESYLATE
     Indication: Hypertension
     Dosage: ROA-ORAL
     Dates: start: 20231106, end: 20231113
  8. ENOXAPARIN [Concomitant]
     Active Substance: ENOXAPARIN
     Indication: Prophylaxis
     Dosage: 120 MG, 1 IN 1 D
     Dates: start: 20230921
  9. OMEPRAZOLE [Concomitant]
     Active Substance: OMEPRAZOLE
     Indication: Prophylaxis
     Dosage: 40 MG (40 MG,1 IN 1 D)?ROA-ORAL
     Dates: start: 20231006
  10. ENALAPRIL [Concomitant]
     Active Substance: ENALAPRIL
     Indication: Hypertension
     Dosage: 10 MG (10 MG,1 IN 1 D)?ROA-ORAL
     Dates: start: 2022

REACTIONS (1)
  - Hypertransaminasaemia [Recovered/Resolved]

NARRATIVE: CASE EVENT DATE: 20231110
